FAERS Safety Report 5157214-5 (Version None)
Quarter: 2006Q4

REPORT INFORMATION
  Report Type: 
  Country: None (occurrence: None)
  Receive Date: 20061127
  Receipt Date: 20061115
  Transmission Date: 20070319
  Serious: Yes (Other)
  Sender: FDA-Public Use
  Company Number: PHBS2006IN17809

PATIENT
  Age: 30 Year

DRUGS (1)
  1. VOVERAN [Suspect]
     Indication: BACK PAIN
     Dosage: 3 ML, UNK
     Route: 030

REACTIONS (1)
  - RADIAL NERVE PALSY [None]
